FAERS Safety Report 7441097-4 (Version None)
Quarter: 2011Q2

REPORT INFORMATION
  Report Type: 
  Country: None (occurrence: None)
  Receive Date: 20110427
  Receipt Date: 20110415
  Transmission Date: 20111010
  Serious: Yes (Disabling)
  Sender: FDA-Public Use
  Company Number: US-BAYER-2011-033516

PATIENT
  Sex: Female

DRUGS (1)
  1. AVELOX [Suspect]
     Dosage: 400 MG, ONCE
     Route: 048
     Dates: start: 20110414, end: 20110414

REACTIONS (4)
  - DIZZINESS [None]
  - RASH [None]
  - VOMITING [None]
  - ANAPHYLACTIC REACTION [None]
